FAERS Safety Report 9385649 (Version 2)
Quarter: 2013Q3

REPORT INFORMATION
  Report Type: Spontaneous
  Country: US (occurrence: US)
  Receive Date: 20130705
  Receipt Date: 20130912
  Transmission Date: 20140515
  Serious: No
  Sender: FDA-Public Use
  Company Number: US-ASTRAZENECA-2013SE49022

PATIENT
  Age: 67 Year
  Sex: Female
  Weight: 76.2 kg

DRUGS (23)
  1. NEXIUM [Suspect]
     Indication: GASTROOESOPHAGEAL REFLUX DISEASE
     Route: 048
     Dates: start: 20121203
  2. PRILOSEC [Suspect]
     Indication: GASTROOESOPHAGEAL REFLUX DISEASE
     Route: 048
  3. METROPOLOL TARTRATE ER [Suspect]
     Indication: HYPERTENSION
     Dosage: ONE AND HALF PILL
     Route: 065
     Dates: end: 20130329
  4. METROPOLOL TARTRATE ER [Suspect]
     Indication: HYPERTENSION
     Dosage: ONE AND HALF PILL
     Route: 065
     Dates: start: 20130405
  5. METROPOLOL TARTRATE ER [Suspect]
     Indication: HYPERTENSION
     Dosage: ONE AND HALF PILL
     Route: 065
     Dates: end: 20130527
  6. METROPOLOL TARTRATE ER [Suspect]
     Indication: HYPERTENSION
     Dosage: HALF DF ONCE A DAY IN AMAND 1 DF IN PM
     Route: 048
     Dates: start: 20111223, end: 20130522
  7. BYSTOLIC [Concomitant]
     Indication: BLOOD PRESSURE ABNORMAL
  8. DIOVAN [Concomitant]
     Indication: CARDIAC DISORDER
  9. SIMVASTATIN [Concomitant]
  10. FOLIC ACID [Concomitant]
     Indication: VITAMIN SUPPLEMENTATION
  11. CLOPIDOGREL [Concomitant]
  12. ZOLPIDEM TARTRATE [Concomitant]
     Indication: SLEEP APNOEA SYNDROME
  13. OTC ASPIRIN [Concomitant]
     Indication: CARDIAC DISORDER
  14. OTC VITAMIN D [Concomitant]
     Indication: VITAMIN D DEFICIENCY
     Dosage: 1000 MG
  15. ADVAIR [Concomitant]
  16. CALCIUM CARBONATE AND VITAMIN D [Concomitant]
  17. HUMALOG PEN [Concomitant]
  18. LANTUS SOLOSTAR PEN [Concomitant]
  19. NITROGLYCERIN ER [Concomitant]
  20. PREMARIN [Concomitant]
  21. PROMETHAZINE VC PLAIN [Concomitant]
  22. VICTOZA [Concomitant]
  23. XOPENEX [Concomitant]

REACTIONS (9)
  - Gastric disorder [Unknown]
  - Abdominal distension [Recovered/Resolved]
  - Bowel movement irregularity [Unknown]
  - Pain [Unknown]
  - Abdominal pain upper [Recovered/Resolved]
  - Constipation [Recovered/Resolved]
  - Flatulence [Unknown]
  - Drug dose omission [Unknown]
  - Drug ineffective [Unknown]
